FAERS Safety Report 13064294 (Version 1)
Quarter: 2016Q4

REPORT INFORMATION
  Report Type: Spontaneous
  Country: US (occurrence: US)
  Receive Date: 20161227
  Receipt Date: 20161227
  Transmission Date: 20170207
  Serious: No
  Sender: FDA-Public Use
  Company Number: US-ELI_LILLY_AND_COMPANY-US201612005861

PATIENT
  Age: 25 Year
  Sex: Female

DRUGS (2)
  1. AMBRISENTAN [Suspect]
     Active Substance: AMBRISENTAN
     Indication: PRODUCT USED FOR UNKNOWN INDICATION
     Dosage: 5 MG, QD
     Route: 065
     Dates: start: 20161207
  2. ADCIRCA [Suspect]
     Active Substance: TADALAFIL
     Indication: PRODUCT USED FOR UNKNOWN INDICATION
     Dosage: UNK
     Route: 065
     Dates: start: 20161207

REACTIONS (8)
  - Headache [Unknown]
  - Oropharyngeal pain [Unknown]
  - Erythema [Unknown]
  - Dizziness [Unknown]
  - Abdominal pain upper [Unknown]
  - Nasal congestion [Unknown]
  - Feeling hot [Unknown]
  - Dyspnoea [Unknown]
